FAERS Safety Report 18168919 (Version 9)
Quarter: 2023Q4

REPORT INFORMATION
  Report Type: Spontaneous
  Country: US (occurrence: US)
  Receive Date: 20200819
  Receipt Date: 20231030
  Transmission Date: 20240110
  Serious: No
  Sender: FDA-Public Use
  Company Number: US-PFIZER INC-2020320662

PATIENT
  Age: 58 Year
  Sex: Female
  Weight: 90.72 kg

DRUGS (5)
  1. PHENELZINE SULFATE [Suspect]
     Active Substance: PHENELZINE SULFATE
     Indication: Agoraphobia
     Dosage: 15 MG, 4X/DAY
     Route: 048
  2. PHENELZINE SULFATE [Suspect]
     Active Substance: PHENELZINE SULFATE
     Indication: Depression
  3. PHENELZINE SULFATE [Suspect]
     Active Substance: PHENELZINE SULFATE
     Indication: Dysphagia
  4. PHENELZINE SULFATE [Suspect]
     Active Substance: PHENELZINE SULFATE
     Indication: Anxiety
  5. CLONAZEPAM [Concomitant]
     Active Substance: CLONAZEPAM
     Dosage: UNK

REACTIONS (5)
  - Dyspnoea [Unknown]
  - Therapeutic response unexpected [Unknown]
  - Dysphagia [Unknown]
  - Drug ineffective [Unknown]
  - Off label use [Unknown]
